FAERS Safety Report 8921439 (Version 5)
Quarter: 2015Q1

REPORT INFORMATION
  Report Type: Spontaneous
  Country: US (occurrence: US)
  Receive Date: 20121121
  Receipt Date: 20150305
  Transmission Date: 20150721
  Serious: Yes (Hospitalization, Disabling, Other)
  Sender: FDA-Public Use
  Company Number: US-009507513-1003USA02080

PATIENT
  Sex: Female
  Weight: 60.69 kg

DRUGS (9)
  1. FOSAMAX PLUS D [Suspect]
     Active Substance: ALENDRONATE SODIUM\CHOLECALCIFEROL
     Indication: OSTEOPOROSIS
     Dosage: 70MG/2800
     Route: 048
     Dates: end: 20100217
  2. SOTALOL HYDROCHLORIDE. [Concomitant]
     Active Substance: SOTALOL HYDROCHLORIDE
     Indication: HEART RATE IRREGULAR
     Dosage: 80 MG, UNK
     Route: 048
  3. FOSAMAX [Suspect]
     Active Substance: ALENDRONATE SODIUM
     Indication: OSTEOPENIA
     Dosage: 10 MG, QD
     Route: 048
     Dates: start: 20001018, end: 200211
  4. OMEGA-3 MARINE TRIGLYCERIDES [Concomitant]
     Active Substance: FISH OIL
     Indication: CORONARY ARTERY DISEASE
     Dosage: 1 DF, UNK
     Route: 048
  5. CALCIUM (UNSPECIFIED) [Concomitant]
     Active Substance: CALCIUM
     Indication: OSTEOPOROSIS
     Dosage: 1000-1200 MG, QD
     Route: 048
  6. FOSAMAX [Suspect]
     Active Substance: ALENDRONATE SODIUM
     Dosage: 70 MG, QW
     Route: 048
     Dates: start: 20070219, end: 20070428
  7. OCUVITE [Concomitant]
     Active Substance: VITAMINS
     Indication: MACULE
     Dosage: 1 DF, QD
     Route: 048
  8. FOSAMAX [Suspect]
     Active Substance: ALENDRONATE SODIUM
     Indication: OSTEOPOROSIS
     Dosage: 5 MG, QD
     Route: 048
     Dates: start: 19990416, end: 200010
  9. FLAXSEED [Concomitant]
     Active Substance: FLAX SEED
     Indication: CORONARY ARTERY DISEASE
     Dosage: 1 DF, UNK
     Route: 048

REACTIONS (19)
  - Femur fracture [Recovering/Resolving]
  - Bone density decreased [Unknown]
  - Uterine dilation and curettage [Unknown]
  - Pain in jaw [Not Recovered/Not Resolved]
  - Femur fracture [Recovered/Resolved]
  - Osteoporosis [Unknown]
  - Femur fracture [Unknown]
  - Fracture [Unknown]
  - Multiple fractures [Unknown]
  - Tonsillectomy [Unknown]
  - Pain in jaw [Unknown]
  - Intramedullary rod insertion [Recovered/Resolved]
  - Intramedullary rod insertion [Recovering/Resolving]
  - B-cell lymphoma [Unknown]
  - Tooth disorder [Unknown]
  - Arrhythmia [Unknown]
  - Pain in extremity [Not Recovered/Not Resolved]
  - Cataract [Unknown]
  - Endodontic procedure [Unknown]

NARRATIVE: CASE EVENT DATE: 2004
